FAERS Safety Report 9303155 (Version 1)
Quarter: 2013Q2

REPORT INFORMATION
  Report Type: Spontaneous
  Country: US (occurrence: None)
  Receive Date: 20130521
  Receipt Date: 20130521
  Transmission Date: 20140414
  Serious: Yes (Hospitalization)
  Sender: FDA-Public Use
  Company Number: None

PATIENT
  Age: 66 Year
  Sex: Male
  Weight: 68 kg

DRUGS (2)
  1. REVLIMID [Suspect]
     Indication: LIGHT CHAIN ANALYSIS
     Dosage: 10 MG DAILY X 2 DAYS PO
     Dates: start: 201011, end: 201304
  2. ZITHROMAX [Suspect]
     Indication: PLASMA CELL MYELOMA
     Dosage: 250 MG DAILY X 4 PO
     Dates: start: 20130422, end: 20130424

REACTIONS (4)
  - Sinusitis [None]
  - Confusional state [None]
  - Aggression [None]
  - Blindness [None]
